FAERS Safety Report 5059096-9 (Version None)
Quarter: 2006Q3

REPORT INFORMATION
  Report Type: 
  Country: None (occurrence: None)
  Receive Date: 20060718
  Receipt Date: 20060705
  Transmission Date: 20061208
  Serious: Yes (Hospitalization, Other)
  Sender: FDA-Public Use
  Company Number: 2006063340

PATIENT
  Age: 70 Year
  Sex: Male

DRUGS (4)
  1. DIFLUCAN [Suspect]
     Indication: DRUG USE FOR UNKNOWN INDICATION
     Dosage: 100 MG (100 MG, 1 IN 1 D), INTRAVENOUS
     Route: 042
     Dates: start: 20060506
  2. ZYVOX [Suspect]
     Indication: DRUG USE FOR UNKNOWN INDICATION
     Dosage: 1200 MG (600 MG, 1 IN 12 HR), INTRAVENOUS
     Route: 042
     Dates: start: 20060506
  3. FLAGYL I.V. [Suspect]
     Indication: DRUG USE FOR UNKNOWN INDICATION
     Dosage: 2400 MG (800 MG, 1 IN 8 HR), INTRAVENOUS
     Route: 042
     Dates: start: 20060430
  4. ZOSYN [Concomitant]

REACTIONS (2)
  - INFECTION [None]
  - SMALL INTESTINAL RESECTION [None]
